FAERS Safety Report 8579551-4 (Version None)
Quarter: 2012Q3

REPORT INFORMATION
  Report Type: 
  Country: None (occurrence: None)
  Receive Date: 20120808
  Receipt Date: 20120802
  Transmission Date: 20120928
  Serious: Yes (Other)
  Sender: FDA-Public Use
  Company Number: US-JNJFOC-20120710996

PATIENT
  Age: 46 Year
  Sex: Female

DRUGS (4)
  1. NICOTINE POLACRILEX [Suspect]
     Indication: SMOKING CESSATION THERAPY
     Route: 002
     Dates: start: 20110101, end: 20110508
  2. NICOTINE POLACRILEX [Suspect]
     Route: 002
  3. NICOTINE [Suspect]
     Indication: SMOKING CESSATION THERAPY
     Dosage: FOR 7 YEARS
     Route: 002
     Dates: start: 20040101, end: 20101201
  4. NICOTINE POLACRILEX [Suspect]
     Route: 002
     Dates: start: 20110508, end: 20110510

REACTIONS (4)
  - INTENTIONAL DRUG MISUSE [None]
  - NICOTINE DEPENDENCE [None]
  - TOOTH DISORDER [None]
  - DYSPEPSIA [None]
